FAERS Safety Report 8850001 (Version 1)
Quarter: 2012Q4

REPORT INFORMATION
  Report Type: 
  Country: US (occurrence: US)
  Receive Date: 20121019
  Receipt Date: 20121019
  Transmission Date: 20130627
  Serious: Yes (Death, Hospitalization, Other)
  Sender: FDA-Public Use
  Company Number: US-ELI_LILLY_AND_COMPANY-US201208009383

PATIENT
  Sex: Male
  Weight: 61 kg

DRUGS (10)
  1. ALIMTA [Suspect]
     Dosage: 895 mg, every 21 days
     Route: 042
     Dates: start: 20110906
  2. ALIMTA [Suspect]
     Dosage: 910 mg, other
     Route: 042
     Dates: end: 20120113
  3. OXYCODONE [Concomitant]
  4. FOLIC ACID [Concomitant]
     Dosage: UNK, qd
     Route: 048
     Dates: start: 20110906, end: 20120113
  5. OXYCONTIN [Concomitant]
  6. DEXAMETHASONE [Concomitant]
  7. COLACE [Concomitant]
  8. CYANOCOBALAMIN [Concomitant]
  9. LACTULOSE [Concomitant]
  10. SODIUM CHLORIDE [Concomitant]

REACTIONS (2)
  - Death [Fatal]
  - Neoplasm progression [Not Recovered/Not Resolved]
